FAERS Safety Report 10064950 (Version 1)
Quarter: 2014Q1

REPORT INFORMATION
  Report Type: Spontaneous
  Country: US (occurrence: None)
  Receive Date: 20140328
  Receipt Date: 20140328
  Transmission Date: 20141002
  Serious: No
  Sender: FDA-Public Use
  Company Number: 1000052607

PATIENT
  Age: 48 Year
  Sex: Female

DRUGS (2)
  1. LINZESS (LINACLOTIDE) (290 MICROGRAM, CAPSULES) [Suspect]
     Indication: IRRITABLE BOWEL SYNDROME
     Route: 048
     Dates: start: 2013, end: 20131229
  2. WELLBUTRIN (BUPROPION HYDROCHLORIDE) (BUPROPION HYDRCHLORIDE) ( [Concomitant]

REACTIONS (6)
  - Diarrhoea [None]
  - Abdominal pain [None]
  - Dysgeusia [None]
  - Parosmia [None]
  - Drug ineffective [None]
  - Visual impairment [None]
